FAERS Safety Report 4631569-X (Version None)
Quarter: 2005Q2

REPORT INFORMATION
  Report Type: 
  Country: None (occurrence: None)
  Receive Date: 20050407
  Receipt Date: 20050329
  Transmission Date: 20051028
  Serious: Yes (Other)
  Sender: FDA-Public Use
  Company Number: 2005044881

PATIENT
  Age: 47 Year
  Sex: Male

DRUGS (3)
  1. CELEBRA (CELECOXIB) [Suspect]
     Indication: SKIN INFECTION
     Dosage: 200 MG (200 MG, 1 IN 1 D), ORAL
     Route: 048
     Dates: start: 20050309, end: 20050314
  2. PENTOSAN POLYSULFATE SODIUM (PENTOSAN POLYSULFATE SODIUM) [Concomitant]
  3. ACYCLOVIR [Concomitant]

REACTIONS (6)
  - BLOODY DISCHARGE [None]
  - DEFAECATION URGENCY [None]
  - MICTURITION URGENCY [None]
  - PENILE DISCHARGE [None]
  - URINARY INCONTINENCE [None]
  - URINARY TRACT INFECTION [None]
